FAERS Safety Report 15116753 (Version 2)
Quarter: 2018Q3

REPORT INFORMATION
  Report Type: Report from Study
  Country: DE (occurrence: DE)
  Receive Date: 20180706
  Receipt Date: 20180816
  Transmission Date: 20181010
  Serious: Yes (Hospitalization, Other)
  Sender: FDA-Public Use
  Company Number: DE-PFIZER INC-2017531913

PATIENT
  Age: 65 Year
  Sex: Female
  Weight: 63 kg

DRUGS (12)
  1. GEMCITABINE HYDROCHLORIDE. [Suspect]
     Active Substance: GEMCITABINE HYDROCHLORIDE
     Dosage: 1652 MG, UNK
     Route: 065
     Dates: start: 20170727, end: 20170727
  2. ABRAXANE [Suspect]
     Active Substance: PACLITAXEL
     Dosage: 207 MG, UNK
     Route: 041
     Dates: start: 20170608, end: 20170608
  3. GEMCITABINE HYDROCHLORIDE. [Suspect]
     Active Substance: GEMCITABINE HYDROCHLORIDE
     Dosage: 1652 MG, UNK
     Route: 065
     Dates: start: 20170629, end: 20170629
  4. GEMCITABINE HYDROCHLORIDE. [Suspect]
     Active Substance: GEMCITABINE HYDROCHLORIDE
     Dosage: 1652 MG, UNK
     Route: 065
     Dates: start: 20170601, end: 20170601
  5. ABRAXANE [Suspect]
     Active Substance: PACLITAXEL
     Indication: PANCREATIC CARCINOMA
     Dosage: 207 MG, UNK
     Route: 041
     Dates: start: 20170504, end: 20170504
  6. ABRAXANE [Suspect]
     Active Substance: PACLITAXEL
     Dosage: 207 MG, UNK
     Route: 041
     Dates: start: 20170727, end: 20170727
  7. GEMCITABINE HYDROCHLORIDE. [Suspect]
     Active Substance: GEMCITABINE HYDROCHLORIDE
     Dosage: 1652 MG, UNK
     Route: 065
     Dates: start: 20170511, end: 20170511
  8. GEMCITABINE HYDROCHLORIDE. [Suspect]
     Active Substance: GEMCITABINE HYDROCHLORIDE
     Dosage: 1652 MG, UNK
     Route: 065
     Dates: start: 20170608, end: 20170608
  9. ABRAXANE [Suspect]
     Active Substance: PACLITAXEL
     Dosage: 207 MG, UNK
     Route: 041
     Dates: start: 20170511, end: 20170511
  10. ABRAXANE [Suspect]
     Active Substance: PACLITAXEL
     Dosage: 207 MG, UNK
     Route: 041
     Dates: start: 20170629, end: 20170629
  11. ABRAXANE [Suspect]
     Active Substance: PACLITAXEL
     Dosage: 207 MG, UNK
     Route: 041
     Dates: start: 20170601, end: 20170601
  12. GEMCITABINE HYDROCHLORIDE. [Suspect]
     Active Substance: GEMCITABINE HYDROCHLORIDE
     Indication: PANCREATIC CARCINOMA
     Dosage: 1652 MG, UNK
     Route: 065
     Dates: start: 20170504, end: 20170511

REACTIONS (7)
  - Thrombocytopenia [Recovered/Resolved]
  - Mucosal inflammation [Recovered/Resolved]
  - Anaemia [Not Recovered/Not Resolved]
  - Thrombocytopenia [Not Recovered/Not Resolved]
  - Pneumonia [Recovered/Resolved]
  - Thrombocytopenia [Recovered/Resolved]
  - Thrombocytopenia [Recovered/Resolved]

NARRATIVE: CASE EVENT DATE: 20170505
